FAERS Safety Report 4477656-0 (Version None)
Quarter: 2004Q4

REPORT INFORMATION
  Report Type: 
  Country: None (occurrence: None)
  Receive Date: 20041013
  Receipt Date: 20040929
  Transmission Date: 20050328
  Serious: Yes (Other)
  Sender: FDA-Public Use
  Company Number: FR_040904895

PATIENT
  Age: 78 Year
  Sex: Male

DRUGS (3)
  1. GEMZAR [Suspect]
     Indication: NON-SMALL CELL LUNG CANCER
     Dates: start: 20040916
  2. NAVELBINE [Concomitant]
  3. LASIX [Concomitant]

REACTIONS (4)
  - ANGINA PECTORIS [None]
  - HYPERTENSION [None]
  - INFUSION SITE PAIN [None]
  - PAIN IN EXTREMITY [None]
